FAERS Safety Report 6573682-6 (Version None)
Quarter: 2010Q1

REPORT INFORMATION
  Report Type: 
  Country: None (occurrence: None)
  Receive Date: 20100204
  Receipt Date: 20100204
  Transmission Date: 20100710
  Serious: Yes (Hospitalization)
  Sender: FDA-Public Use
  Company Number: None

PATIENT
  Sex: Female
  Weight: 62.0521 kg

DRUGS (3)
  1. HERCEPTIN [Suspect]
     Dosage: 336 MG EVERY 3 WEEKS IV
     Route: 042
     Dates: start: 20090302
  2. TAXOTERE [Concomitant]
  3. CYTOXAN [Concomitant]

REACTIONS (1)
  - COLITIS ISCHAEMIC [None]
